FAERS Safety Report 5864182-7 (Version None)
Quarter: 2008Q3

REPORT INFORMATION
  Report Type: 
  Country: None (occurrence: None)
  Receive Date: 20080829
  Receipt Date: 20080821
  Transmission Date: 20090109
  Serious: Yes (Life-Threatening, Hospitalization, Other)
  Sender: FDA-Public Use
  Company Number: SI-ROCHE-582381

PATIENT
  Age: 68 Year
  Sex: Female

DRUGS (1)
  1. XELODA [Suspect]
     Route: 048

REACTIONS (5)
  - BODY TEMPERATURE INCREASED [None]
  - DIARRHOEA [None]
  - MUCOSAL INFLAMMATION [None]
  - PALMAR-PLANTAR ERYTHRODYSAESTHESIA SYNDROME [None]
  - PANCYTOPENIA [None]
